FAERS Safety Report 11796219 (Version 1)
Quarter: 2015Q4

REPORT INFORMATION
  Report Type: Spontaneous
  Country: US (occurrence: None)
  Receive Date: 20151202
  Receipt Date: 20151202
  Transmission Date: 20160305
  Serious: Yes (Hospitalization)
  Sender: FDA-Public Use
  Company Number: None

PATIENT
  Age: 57 Year
  Sex: Male
  Weight: 116.5 kg

DRUGS (2)
  1. TECHNETIUM TC-99M MPI MDP [Suspect]
     Active Substance: TECHNETIUM TC-99M MEDRONATE
     Indication: SURGERY
     Dosage: 11.5 UNITS  ONCE  IV
     Route: 042
     Dates: start: 20150619, end: 20150619
  2. TECHNETIUM TC-99M MPI MDP [Suspect]
     Active Substance: TECHNETIUM TC-99M MEDRONATE
     Indication: CARDIOVASCULAR DISORDER
     Dosage: 11.5 UNITS  ONCE  IV
     Route: 042
     Dates: start: 20150619, end: 20150619

REACTIONS (2)
  - Fall [None]
  - Syncope [None]

NARRATIVE: CASE EVENT DATE: 20150619
